FAERS Safety Report 5730319-3 (Version None)
Quarter: 2008Q2

REPORT INFORMATION
  Report Type: 
  Country: None (occurrence: None)
  Receive Date: 20080505
  Receipt Date: 20080505
  Transmission Date: 20081010
  Serious: Yes (Disabling, Other)
  Sender: FDA-Public Use
  Company Number: None

PATIENT
  Age: 41 Year
  Sex: Male
  Weight: 104.3273 kg

DRUGS (1)
  1. LEVAQUIN [Suspect]
     Indication: EPIDIDYMITIS
     Dosage: 500 MG DAILY PO
     Route: 048
     Dates: start: 20080331, end: 20080427

REACTIONS (5)
  - ARTHRALGIA [None]
  - BLOOD PRESSURE INCREASED [None]
  - GAIT DISTURBANCE [None]
  - HYPERAESTHESIA [None]
  - TENDON PAIN [None]
